FAERS Safety Report 4788226-9 (Version None)
Quarter: 2005Q4

REPORT INFORMATION
  Report Type: 
  Country: None (occurrence: None)
  Receive Date: 20051004
  Receipt Date: 20051004
  Transmission Date: 20060501
  Serious: Yes (Hospitalization)
  Sender: FDA-Public Use
  Company Number: None

PATIENT
  Sex: Female
  Weight: 57.05 kg

DRUGS (7)
  1. VALPROATE SODIUM [Suspect]
     Indication: PSYCHOTIC DISORDER
     Dosage: 1500MG   BID  PO
     Route: 048
     Dates: start: 20050630, end: 20050830
  2. APAP TAB [Concomitant]
  3. CHLORPROMAZINE [Concomitant]
  4. DULOXETIE [Concomitant]
  5. INSULIN [Concomitant]
  6. QUETIAPINE FUMARATE [Concomitant]
  7. RANITIDINE [Concomitant]

REACTIONS (2)
  - PLATELET COUNT DECREASED [None]
  - WHITE BLOOD CELL COUNT DECREASED [None]
